FAERS Safety Report 10150204 (Version 1)
Quarter: 2014Q2

REPORT INFORMATION
  Report Type: Spontaneous
  Country: GB (occurrence: GB)
  Receive Date: 20140502
  Receipt Date: 20140502
  Transmission Date: 20141212
  Serious: Yes (Other)
  Sender: FDA-Public Use
  Company Number: GB-WATSON-2014-08822

PATIENT
  Sex: Male

DRUGS (2)
  1. RAMIPRIL (UNKNOWN) [Suspect]
     Indication: HYPERTENSION
     Dosage: 10 MG, DAILY
     Route: 048
     Dates: end: 20140402
  2. EVEROLIMUS [Interacting]
     Indication: NEUROENDOCRINE CARCINOMA METASTATIC
     Dosage: 5 MG, UNK; ON ALTERNATIVE DAYS.
     Route: 048
     Dates: start: 20131113, end: 20140402

REACTIONS (5)
  - Angioedema [Recovered/Resolved]
  - Dyspnoea [Unknown]
  - Stridor [Unknown]
  - Swelling [Unknown]
  - Drug interaction [Unknown]
